FAERS Safety Report 21279665 (Version 1)
Quarter: 2022Q3

REPORT INFORMATION
  Report Type: Report from Study
  Country: FR (occurrence: FR)
  Receive Date: 20220901
  Receipt Date: 20220901
  Transmission Date: 20221027
  Serious: Yes (Hospitalization, Other)
  Sender: FDA-Public Use
  Company Number: FR-TAKEDA-2022TUS059878

PATIENT
  Age: 45 Year
  Sex: Male

DRUGS (12)
  1. ICATIBANT [Suspect]
     Active Substance: ICATIBANT ACETATE
     Indication: Hereditary angioedema
     Dosage: 30 MILLIGRAM
     Route: 050
  2. ICATIBANT [Suspect]
     Active Substance: ICATIBANT ACETATE
     Indication: Hereditary angioedema
     Dosage: 30 MILLIGRAM
     Route: 050
  3. ICATIBANT [Suspect]
     Active Substance: ICATIBANT ACETATE
     Dosage: UNK
     Route: 065
     Dates: start: 20170331
  4. ICATIBANT [Suspect]
     Active Substance: ICATIBANT ACETATE
     Dosage: UNK
     Route: 065
     Dates: start: 20170331
  5. DANAZOL [Concomitant]
     Active Substance: DANAZOL
     Indication: Angioedema
     Dosage: 1 INTERNATIONAL UNIT, QD
     Route: 048
     Dates: start: 2012, end: 201302
  6. TRANEXAMIC ACID [Concomitant]
     Active Substance: TRANEXAMIC ACID
     Indication: Angioedema
     Dosage: 1 GRAM, QD
     Dates: start: 2012, end: 20170501
  7. DANAZOL [Concomitant]
     Active Substance: DANAZOL
     Indication: Oedema
     Dosage: 200 MILLIGRAM, BID
     Route: 048
     Dates: start: 201302, end: 20170501
  8. ASPIRIN [Concomitant]
     Active Substance: ASPIRIN
     Indication: Myocardial infarction
     Dosage: 100 MILLIGRAM, QD
     Route: 048
     Dates: start: 20170803
  9. TICAGRELOR [Concomitant]
     Active Substance: TICAGRELOR
     Indication: Myocardial infarction
     Dosage: 90 MILLIGRAM, BID
     Route: 048
     Dates: start: 20170803
  10. ATORVASTATIN CALCIUM [Concomitant]
     Active Substance: ATORVASTATIN CALCIUM
     Indication: Myocardial infarction
     Dosage: 80 MILLIGRAM, QD
     Route: 048
     Dates: start: 20170803
  11. BISOPROLOL FUMARATE [Concomitant]
     Active Substance: BISOPROLOL FUMARATE
     Indication: Myocardial infarction
     Dosage: 1.25 MILLIGRAM, QD
     Route: 048
     Dates: start: 20170803
  12. RAMIPRIL [Concomitant]
     Active Substance: RAMIPRIL
     Indication: Myocardial infarction
     Dosage: 1.25 MILLIGRAM, QD
     Route: 048
     Dates: start: 20170803

REACTIONS (1)
  - Myocardial infarction [Recovered/Resolved]

NARRATIVE: CASE EVENT DATE: 20170801
